FAERS Safety Report 21339877 (Version 1)
Quarter: 2022Q3

REPORT INFORMATION
  Report Type: Spontaneous
  Country: US (occurrence: US)
  Receive Date: 20220915
  Receipt Date: 20220915
  Transmission Date: 20221026
  Serious: Yes (Hospitalization)
  Sender: FDA-Public Use
  Company Number: US-ALMIRALL, LLC-2022AQU000032

PATIENT
  Sex: Male

DRUGS (1)
  1. ACTICLATE [Suspect]
     Active Substance: DOXYCYCLINE HYCLATE
     Indication: Acne cystic
     Dosage: UNK

REACTIONS (1)
  - Colitis [Unknown]
